FAERS Safety Report 14553010 (Version 5)
Quarter: 2018Q1

REPORT INFORMATION
  Report Type: Report from Study
  Country: None (occurrence: GB)
  Receive Date: 20180220
  Receipt Date: 20180309
  Transmission Date: 20180509
  Serious: Yes (Other)
  Sender: FDA-Public Use
  Company Number: GB-ABBVIE-18K-167-2260340-00

PATIENT
  Age: 70 Year
  Sex: Female

DRUGS (2)
  1. DUODOPA [Suspect]
     Active Substance: CARBIDOPA\LEVODOPA
     Dosage: 100ML CASSETTE
     Route: 050
  2. DUODOPA [Suspect]
     Active Substance: CARBIDOPA\LEVODOPA
     Indication: PARKINSON^S DISEASE
     Dosage: 100ML CASSETTE
     Route: 050

REACTIONS (20)
  - Drug effect decreased [Unknown]
  - Device use error [Unknown]
  - Laceration [Recovering/Resolving]
  - Eating disorder [Unknown]
  - Dysarthria [Unknown]
  - Tremor [Unknown]
  - Hallucination [Unknown]
  - Speech disorder [Unknown]
  - Parkinson^s disease [Unknown]
  - Device issue [Recovering/Resolving]
  - Incorrect dose administered [Unknown]
  - Fall [Recovering/Resolving]
  - Wheezing [Not Recovered/Not Resolved]
  - Incoherent [Unknown]
  - Drooling [Unknown]
  - Adverse reaction [Unknown]
  - Agitation [Unknown]
  - Insomnia [Unknown]
  - Muscle rigidity [Unknown]
  - Malaise [Unknown]

NARRATIVE: CASE EVENT DATE: 201802
